FAERS Safety Report 5623942-8 (Version None)
Quarter: 2008Q1

REPORT INFORMATION
  Report Type: 
  Country: None (occurrence: None)
  Receive Date: 20080205
  Receipt Date: 20080123
  Transmission Date: 20080703
  Serious: Yes (Hospitalization)
  Sender: FDA-Public Use
  Company Number: 2008-171046-NL

PATIENT
  Age: 78 Year
  Sex: Male

DRUGS (1)
  1. TICE BCG [Suspect]
     Indication: BLADDER TRANSITIONAL CELL CARCINOMA
     Dosage: CFU INTRAVESICAL, SIX INSTILLATIONS
     Route: 043

REACTIONS (9)
  - BALANITIS [None]
  - BIOPSY PENIS ABNORMAL [None]
  - CYSTITIS NONINFECTIVE [None]
  - LYMPHADENOPATHY [None]
  - PENILE NECROSIS [None]
  - PENILE SWELLING [None]
  - PENILE ULCERATION [None]
  - PYREXIA [None]
  - SUPRAPUBIC PAIN [None]
